FAERS Safety Report 8385865-3 (Version None)
Quarter: 2012Q2

REPORT INFORMATION
  Report Type: 
  Country: None (occurrence: None)
  Receive Date: 20120523
  Receipt Date: 20120509
  Transmission Date: 20120825
  Serious: Yes (Other)
  Sender: FDA-Public Use
  Company Number: TPA2012A02744

PATIENT
  Age: 71 Year
  Sex: Male

DRUGS (2)
  1. ACTOS [Suspect]
     Dates: start: 20070101
  2. UNSPECIFIED MEDICATIONS (ALL OTHER THERAPEUTIC  PRODUCTS) [Concomitant]

REACTIONS (2)
  - BLADDER CANCER [None]
  - METASTASES TO KIDNEY [None]
